FAERS Safety Report 4607606-5 (Version None)
Quarter: 2005Q1

REPORT INFORMATION
  Report Type: 
  Country: None (occurrence: None)
  Receive Date: 20050314
  Receipt Date: 20050303
  Transmission Date: 20050727
  Serious: Yes (Other)
  Sender: FDA-Public Use
  Company Number: PHBS2005US03477

PATIENT
  Sex: Female

DRUGS (2)
  1. CARBAMAZEPINE [Suspect]
     Route: 064
  2. VALPROIC ACID [Suspect]
     Route: 064

REACTIONS (10)
  - CAFE AU LAIT SPOTS [None]
  - COGNITIVE DISORDER [None]
  - DRUG EXPOSURE DURING PREGNANCY [None]
  - EPHELIDES [None]
  - EXOPHTHALMOS [None]
  - NEUROFIBROMATOSIS [None]
  - OPTIC NERVE GLIOMA [None]
  - SKIN HYPOPIGMENTATION [None]
  - SPEECH DISORDER [None]
  - TUBEROUS SCLEROSIS [None]
